FAERS Safety Report 5449835-7 (Version None)
Quarter: 2007Q3

REPORT INFORMATION
  Report Type: 
  Country: None (occurrence: None)
  Receive Date: 20070830
  Receipt Date: 20070817
  Transmission Date: 20080115
  Serious: Yes (Other)
  Sender: FDA-Public Use
  Company Number: AECAN200700193

PATIENT
  Age: 18 Year
  Sex: Female

DRUGS (2)
  1. GAMUNEX [Suspect]
     Indication: TOXIC SHOCK SYNDROME
     Dosage: 10 GM; IV
     Route: 042
     Dates: start: 20070730, end: 20070801
  2. ANCEF [Concomitant]

REACTIONS (15)
  - ATELECTASIS [None]
  - BACK PAIN [None]
  - CHEST PAIN [None]
  - CHILLS [None]
  - DYSPNOEA [None]
  - FLUID OVERLOAD [None]
  - HAEMOGLOBIN DECREASED [None]
  - HEADACHE [None]
  - HYPOVENTILATION [None]
  - PLATELET COUNT DECREASED [None]
  - PULMONARY OEDEMA [None]
  - PYREXIA [None]
  - STAPHYLOCOCCAL INFECTION [None]
  - TACHYCARDIA [None]
  - TRANSFUSION-RELATED ACUTE LUNG INJURY [None]
